FAERS Safety Report 22052658 (Version 1)
Quarter: 2023Q1

REPORT INFORMATION
  Report Type: Spontaneous
  Country: US (occurrence: US)
  Receive Date: 20230302
  Receipt Date: 20230302
  Transmission Date: 20230417
  Serious: No
  Sender: FDA-Public Use
  Company Number: US-BIOGEN-2018BI00542101

PATIENT
  Sex: Female

DRUGS (1)
  1. TECFIDERA [Suspect]
     Active Substance: DIMETHYL FUMARATE
     Indication: Multiple sclerosis
     Dosage: MAINTENANCE DOSE
     Route: 050

REACTIONS (6)
  - Drug ineffective [Recovered/Resolved]
  - Muscular weakness [Not Recovered/Not Resolved]
  - Stress [Not Recovered/Not Resolved]
  - Flushing [Recovered/Resolved]
  - Rash pruritic [Recovered/Resolved]
  - Hot flush [Recovered/Resolved]
